FAERS Safety Report 13271278 (Version 1)
Quarter: 2017Q1

REPORT INFORMATION
  Report Type: Report from Study
  Country: CO (occurrence: CO)
  Receive Date: 20170226
  Receipt Date: 20170226
  Transmission Date: 20170428
  Serious: Yes (Death)
  Sender: FDA-Public Use
  Company Number: CO-ROCHE-1811532

PATIENT
  Sex: Female

DRUGS (1)
  1. AVASTIN [Suspect]
     Active Substance: BEVACIZUMAB
     Indication: OVARIAN CANCER
     Route: 042
     Dates: start: 20150911

REACTIONS (5)
  - Rash [Unknown]
  - Dizziness [Unknown]
  - Paraesthesia [Unknown]
  - Death [Fatal]
  - Nausea [Unknown]
